FAERS Safety Report 4437462-X (Version None)
Quarter: 2004Q3

REPORT INFORMATION
  Report Type: 
  Country: None (occurrence: None)
  Receive Date: 20040827
  Receipt Date: 20040812
  Transmission Date: 20050211
  Serious: Yes (Hospitalization)
  Sender: FDA-Public Use
  Company Number: J200403176

PATIENT
  Age: 44 Year
  Sex: Female

DRUGS (4)
  1. (MYSLEE)ZOLPIDEM TABLET 10MG [Suspect]
     Indication: INSOMNIA
     Dosage: 10 MG PO
     Route: 048
     Dates: end: 20040706
  2. PAXIL [Suspect]
     Indication: DEPRESSION
     Dosage: 30 MG PO
     Route: 048
     Dates: end: 20040706
  3. ESTAZOLAM [Suspect]
     Indication: INSOMNIA
     Dosage: 1 MG PO
     Route: 048
     Dates: end: 20040706
  4. SILECE  FLUINTRAZEPAM TABLET 2MG [Suspect]
     Indication: INSOMNIA
     Dosage: 2 MG PO
     Route: 048
     Dates: end: 20040706

REACTIONS (5)
  - ASTHENIA [None]
  - DIARRHOEA [None]
  - HEPATITIS ACUTE [None]
  - NAUSEA [None]
  - VOMITING [None]
